FAERS Safety Report 7501823-2 (Version None)
Quarter: 2011Q2

REPORT INFORMATION
  Report Type: 
  Country: None (occurrence: None)
  Receive Date: 20110525
  Receipt Date: 20101018
  Transmission Date: 20111010
  Serious: Yes (Hospitalization, Other)
  Sender: FDA-Public Use
  Company Number: US-BAYER-200943227NA

PATIENT
  Age: 38 Year
  Sex: Female
  Weight: 54.422 kg

DRUGS (11)
  1. NSAID'S [Concomitant]
  2. ZELNORM [Concomitant]
  3. LEVOXYL [Concomitant]
     Indication: HYPOTHYROIDISM
     Dosage: 137 ?G, UNK
     Dates: start: 19950101
  4. AMITRIPTYLINE HCL [Concomitant]
     Dosage: UNK
     Dates: start: 20050101
  5. FLUOXETINE [Concomitant]
  6. SENOKOT [Concomitant]
  7. YASMIN [Suspect]
     Indication: PRODUCT USED FOR UNKNOWN INDICATION
     Dosage: UNK
     Dates: start: 20050101, end: 20070101
  8. YAZ [Suspect]
     Indication: PRODUCT USED FOR UNKNOWN INDICATION
     Dates: start: 20060101
  9. CARAFATE [Concomitant]
  10. LEVSIN [Concomitant]
  11. MIRALAX [Concomitant]

REACTIONS (3)
  - CHOLELITHIASIS [None]
  - VAGINAL HAEMORRHAGE [None]
  - WEIGHT DECREASED [None]
